FAERS Safety Report 4437823-9 (Version None)
Quarter: 2004Q3

REPORT INFORMATION
  Report Type: 
  Country: None (occurrence: None)
  Receive Date: 20040831
  Receipt Date: 20040806
  Transmission Date: 20050211
  Serious: Yes (Death, Hospitalization)
  Sender: FDA-Public Use
  Company Number: FR-BRISTOL-MYERS SQUIBB COMPANY-12663696

PATIENT
  Age: 41 Year
  Sex: Female
  Weight: 51 kg

DRUGS (2)
  1. TAXOL [Suspect]
     Indication: BREAST CANCER
     Dosage: 7TH COURSE
     Route: 042
     Dates: start: 20040723, end: 20040723
  2. HERCEPTIN [Suspect]
     Indication: BREAST CANCER
     Dosage: 7TH COURSE
     Route: 042
     Dates: start: 20040723, end: 20040723

REACTIONS (2)
  - DISSEMINATED INTRAVASCULAR COAGULATION [None]
  - LEUKOPENIA [None]
